FAERS Safety Report 4414776-0 (Version None)
Quarter: 2004Q3

REPORT INFORMATION
  Report Type: 
  Country: None (occurrence: None)
  Receive Date: 20040804
  Receipt Date: 20030917
  Transmission Date: 20050211
  Serious: No
  Sender: FDA-Public Use
  Company Number: US-BRISTOL-MYERS SQUIBB COMPANY-12386967

PATIENT
  Age: 65 Year
  Sex: Female
  Weight: 79 kg

DRUGS (5)
  1. GLUCOVANCE [Suspect]
     Indication: DIABETES MELLITUS
     Route: 048
     Dates: start: 20030916
  2. COUMADIN [Concomitant]
  3. SYNTHROID [Concomitant]
  4. PRILOSEC [Concomitant]
  5. LOPRESSOR [Concomitant]

REACTIONS (5)
  - ABDOMINAL DISCOMFORT [None]
  - ABDOMINAL PAIN [None]
  - DIARRHOEA [None]
  - DYSPEPSIA [None]
  - HEADACHE [None]
